FAERS Safety Report 13571616 (Version 3)
Quarter: 2017Q2

REPORT INFORMATION
  Report Type: Spontaneous
  Country: IT (occurrence: IT)
  Receive Date: 20170523
  Receipt Date: 20170606
  Transmission Date: 20170830
  Serious: Yes (Other)
  Sender: FDA-Public Use
  Company Number: IT-ACCORD-051551

PATIENT
  Age: 78 Year
  Sex: Male
  Weight: 77 kg

DRUGS (5)
  1. IRINOTECAN [Suspect]
     Active Substance: IRINOTECAN
     Indication: ADENOCARCINOMA OF COLON
     Dosage: ALSO RECEIVED 250 MG FROM 14-OCT-2016 TO 26-JAN-2017 (105 DAYS).
     Route: 042
     Dates: start: 20161014
  2. FLUOROURACIL. [Suspect]
     Active Substance: FLUOROURACIL
     Indication: ADENOCARCINOMA OF COLON
     Dosage: ALSO RECEIVED 3300 MG CYCLICAL FROM 14-OCT-2016 6-JAN-2017 (105 DAYS)
     Route: 042
     Dates: start: 20161014
  3. LEVOFOLINIC ACID [Concomitant]
     Active Substance: LEVOLEUCOVORIN
     Indication: PRODUCT USED FOR UNKNOWN INDICATION
     Route: 042
     Dates: start: 20161014, end: 20170126
  4. AVASTIN [Suspect]
     Active Substance: BEVACIZUMAB
     Indication: ADENOCARCINOMA OF COLON
     Dosage: ALSO RECEIVED 380 MG FROM 14-OCT-2016 TO 26-JAN-2017 (105 DAYS)
     Route: 042
     Dates: start: 20161014
  5. PLAUNAC [Concomitant]
     Active Substance: OLMESARTAN MEDOXOMIL
     Indication: PRODUCT USED FOR UNKNOWN INDICATION

REACTIONS (5)
  - Anaemia [Recovering/Resolving]
  - Diarrhoea [Recovering/Resolving]
  - Hypertransaminasaemia [Recovering/Resolving]
  - Hypertension [Recovering/Resolving]
  - Cystitis [Recovering/Resolving]

NARRATIVE: CASE EVENT DATE: 20161101
